FAERS Safety Report 19120614 (Version 1)
Quarter: 2021Q2

REPORT INFORMATION
  Report Type: Spontaneous
  Country: US (occurrence: US)
  Receive Date: 20210410
  Receipt Date: 20210410
  Transmission Date: 20210717
  Serious: Yes (Hospitalization, Other)
  Sender: FDA-Public Use
  Company Number: None

PATIENT
  Age: 3 Year
  Sex: Female
  Weight: 17.1 kg

DRUGS (1)
  1. EX?LAX REGULAR STRENGTH CHOCOLATED STIMULANT LAXATIVE [Suspect]
     Active Substance: SENNOSIDES
     Indication: ENCOPRESIS
     Dosage: ?          QUANTITY:.5 PIECE;?
     Route: 048
     Dates: start: 20190607, end: 20190614

REACTIONS (7)
  - Second degree chemical burn of skin [None]
  - Blister [None]
  - Hypophagia [None]
  - Dysuria [None]
  - Vaginal mucosal blistering [None]
  - Accidental overdose [None]
  - Abdominal pain [None]

NARRATIVE: CASE EVENT DATE: 20190615
